FAERS Safety Report 17431678 (Version 1)
Quarter: 2020Q1

REPORT INFORMATION
  Report Type: Spontaneous
  Country: GB (occurrence: GB)
  Receive Date: 20200218
  Receipt Date: 20200218
  Transmission Date: 20200409
  Serious: Yes (Hospitalization)
  Sender: FDA-Public Use
  Company Number: GB-MYLANLABS-2020M1017945

PATIENT
  Age: 95 Year
  Sex: Female

DRUGS (7)
  1. LATANOPROST. [Concomitant]
     Active Substance: LATANOPROST
     Dosage: 1 GTT DROPS, QD ()BOTH EYES.50MICROGRAMS/ML
     Route: 031
  2. INDAPAMIDE. [Suspect]
     Active Substance: INDAPAMIDE
     Indication: PRODUCT USED FOR UNKNOWN INDICATION
     Dosage: 2.5 MILLIGRAM, QD (MORNING)
     Route: 048
  3. AMIODARONE [Suspect]
     Active Substance: AMIODARONE
     Indication: PRODUCT USED FOR UNKNOWN INDICATION
     Dosage: 100 MILLIGRAM, QD (MORNING)
     Route: 048
  4. TIMOLOL. [Concomitant]
     Active Substance: TIMOLOL
     Dosage: 5 MILLIGRAM PER MILLILITRE
  5. COCODAMOL [Concomitant]
     Active Substance: ACETAMINOPHEN\CODEINE PHOSPHATE
     Dosage: 2 DOSAGE FORM, QD (MORNING. 8MG/500MG)
     Route: 048
  6. CASSIA SENNA [Concomitant]
     Active Substance: HERBALS\SENNOSIDES
     Dosage: 7.5 MILLIGRAM, PRN (AS NECESSARY)
  7. ACETYLSALICYLIC ACID [Concomitant]
     Active Substance: ASPIRIN
     Dosage: 75 MILLIGRAM, QD (MORNING)
     Route: 048

REACTIONS (3)
  - Acute kidney injury [Recovered/Resolved]
  - Dehydration [Recovered/Resolved]
  - Electrocardiogram QT prolonged [Unknown]

NARRATIVE: CASE EVENT DATE: 20191103
